FAERS Safety Report 17086709 (Version 1)
Quarter: 2019Q4

REPORT INFORMATION
  Report Type: Report from Study
  Country: None (occurrence: US)
  Receive Date: 20191128
  Receipt Date: 20191128
  Transmission Date: 20200122
  Serious: Yes (Death, Other)
  Sender: FDA-Public Use
  Company Number: US-ABBVIE-18K-163-2221287-00

PATIENT
  Age: 93 Year
  Sex: Female

DRUGS (2)
  1. HUMIRA [Suspect]
     Active Substance: ADALIMUMAB
     Indication: RHEUMATOID ARTHRITIS
     Route: 058
     Dates: start: 201609, end: 20171215
  2. HUMIRA [Suspect]
     Active Substance: ADALIMUMAB
     Indication: RHEUMATOID VASCULITIS

REACTIONS (5)
  - Death [Fatal]
  - Localised infection [Unknown]
  - Impaired healing [Recovering/Resolving]
  - Post procedural oedema [Unknown]
  - Off label use [Unknown]

NARRATIVE: CASE EVENT DATE: 201807
